FAERS Safety Report 13945150 (Version 2)
Quarter: 2017Q4

REPORT INFORMATION
  Report Type: Spontaneous
  Country: US (occurrence: US)
  Receive Date: 20170907
  Receipt Date: 20171012
  Transmission Date: 20180320
  Serious: No
  Sender: FDA-Public Use
  Company Number: US-LUPIN PHARMACEUTICALS INC.-2017-04899

PATIENT
  Age: 61 Year
  Sex: Female
  Weight: 63.49 kg

DRUGS (1)
  1. CEPHALEXIN CAPSULES USP, 500 MG [Suspect]
     Active Substance: CEPHALEXIN
     Indication: PROPHYLAXIS
     Dosage: 500 MG, TID
     Route: 048
     Dates: start: 20170809, end: 20170812

REACTIONS (7)
  - Burning sensation mucosal [Recovering/Resolving]
  - Oropharyngeal pain [Recovering/Resolving]
  - Lip pain [Recovering/Resolving]
  - Glossodynia [Recovering/Resolving]
  - Oral mucosal discolouration [Recovering/Resolving]
  - Rash macular [Recovering/Resolving]
  - Gingival discolouration [Recovering/Resolving]

NARRATIVE: CASE EVENT DATE: 20170809
